FAERS Safety Report 9696590 (Version 1)
Quarter: 2013Q4

REPORT INFORMATION
  Report Type: Spontaneous
  Country: GB (occurrence: None)
  Receive Date: 20131115
  Receipt Date: 20131115
  Transmission Date: 20140711
  Serious: Yes (Hospitalization, Other)
  Sender: FDA-Public Use
  Company Number: AUR-APL-2013-09495

PATIENT
  Age: 23 Year
  Sex: Female

DRUGS (1)
  1. CITALOPRAM [Suspect]
     Indication: BIPOLAR DISORDER
     Dosage: UNKNOWN

REACTIONS (6)
  - Overdose [None]
  - Alcohol use [None]
  - Somnolence [None]
  - Sedation [None]
  - Depressed mood [None]
  - Shock [None]
